FAERS Safety Report 8773320 (Version 1)
Quarter: 2012Q4

REPORT INFORMATION
  Report Type: Report from Study
  Country: US (occurrence: US)
  Receive Date: 20120907
  Receipt Date: 20120907
  Transmission Date: 20130627
  Serious: Yes (Hospitalization)
  Sender: FDA-Public Use
  Company Number: US-ROCHE-1109850

PATIENT
  Age: 60 Year
  Sex: Male

DRUGS (7)
  1. RANIBIZUMAB [Suspect]
     Indication: DIABETIC RETINAL OEDEMA
     Route: 065
     Dates: start: 200710
  2. RANIBIZUMAB [Suspect]
     Route: 065
     Dates: end: 201008
  3. GLUCOVANCE [Concomitant]
     Route: 065
     Dates: start: 200502
  4. VYTORIN [Concomitant]
     Route: 065
     Dates: start: 200502
  5. ASPIRIN [Concomitant]
     Route: 065
     Dates: start: 200709
  6. AMLODIPINE/BENAZEPRIL HYDROCHLORIDE [Concomitant]
     Route: 065
     Dates: start: 200502
  7. ACTOS [Concomitant]
     Route: 065
     Dates: start: 201106

REACTIONS (1)
  - Coronary artery disease [Unknown]
